FAERS Safety Report 15575026 (Version 1)
Quarter: 2018Q4

REPORT INFORMATION
  Report Type: Spontaneous
  Country: CH (occurrence: CH)
  Receive Date: 20181101
  Receipt Date: 20181101
  Transmission Date: 20190205
  Serious: Yes (Hospitalization)
  Sender: FDA-Public Use
  Company Number: CH-ASTELLAS-2018US046253

PATIENT
  Age: 56 Year
  Sex: Male

DRUGS (6)
  1. PREDNISOLONE. [Concomitant]
     Active Substance: PREDNISOLONE
     Indication: RENAL TRANSPLANT
     Dosage: UNK UNK, UNKNOWN FREQ.
     Route: 065
  2. BASILIXIMAB [Concomitant]
     Active Substance: BASILIXIMAB
     Indication: RENAL TRANSPLANT
     Dosage: UNK UNK, UNKNOWN FREQ (ON DAY 1 AND 4)
     Route: 065
  3. SODIUM POLYSTYRENE SULFONATE. [Suspect]
     Active Substance: SODIUM POLYSTYRENE SULFONATE
     Indication: METABOLIC ACIDOSIS
     Dosage: UNK UNK, UNKNOWN FREQ.
     Route: 065
  4. MYCOPHENOLATE [Concomitant]
     Active Substance: MYCOPHENOLIC ACID
     Indication: RENAL TRANSPLANT
     Dosage: UNK UNK, UNKNOWN FREQ.
     Route: 065
  5. SODIUM POLYSTYRENE SULFONATE. [Suspect]
     Active Substance: SODIUM POLYSTYRENE SULFONATE
     Indication: HYPERKALAEMIA
  6. TACROLIMUS. [Suspect]
     Active Substance: TACROLIMUS
     Indication: RENAL TRANSPLANT
     Dosage: UNK, UNKNOWN FREQ.
     Route: 065

REACTIONS (13)
  - Lymphopenia [Unknown]
  - Cytomegalovirus infection [Unknown]
  - Hypoaldosteronism [Unknown]
  - Duodenitis haemorrhagic [Recovered/Resolved]
  - Metabolic acidosis [Unknown]
  - Delayed graft function [Unknown]
  - Anaemia [Unknown]
  - Hyperkalaemia [Unknown]
  - Haematoma [Recovered/Resolved]
  - Gastrointestinal toxicity [Unknown]
  - Renal tubular necrosis [Unknown]
  - Blood creatinine increased [Recovered/Resolved]
  - Hyperglycaemia [Unknown]
